FAERS Safety Report 4701183-6 (Version None)
Quarter: 2005Q2

REPORT INFORMATION
  Report Type: 
  Country: None (occurrence: None)
  Receive Date: 20050628
  Receipt Date: 20050614
  Transmission Date: 20051028
  Serious: Yes (Hospitalization)
  Sender: FDA-Public Use
  Company Number: GB-NOVOPROD-244840

PATIENT
  Age: 28 Year
  Sex: Female
  Weight: 82 kg

DRUGS (6)
  1. LEVEMIR [Suspect]
     Indication: DIABETES MELLITUS
     Dosage: 34 IU, QD
     Route: 058
     Dates: start: 20050517
  2. LEVEMIR [Suspect]
     Dosage: 24 IU, QD
     Route: 058
     Dates: start: 20050520
  3. HYDROCORTISONE [Concomitant]
     Dosage: 25 MG, QD
     Route: 048
     Dates: start: 20020901
  4. HYDROCORTISONE [Concomitant]
     Dosage: 50 MG, QD
  5. FLUDROCORTISONE [Concomitant]
     Dosage: 100 UG, QD
     Route: 048
     Dates: start: 20020901
  6. TRISEQUENS [Concomitant]
     Dosage: 2 MG, QD
     Route: 048
     Dates: start: 20040501

REACTIONS (5)
  - ADRENOCORTICAL INSUFFICIENCY ACUTE [None]
  - APHASIA [None]
  - HEMIPLEGIA [None]
  - HYPOGLYCAEMIA [None]
  - LOSS OF CONSCIOUSNESS [None]
